FAERS Safety Report 26019336 (Version 1)
Quarter: 2025Q4

REPORT INFORMATION
  Report Type: Spontaneous
  Country: CN (occurrence: CN)
  Receive Date: 20251110
  Receipt Date: 20251110
  Transmission Date: 20260118
  Serious: Yes (Life-Threatening, Hospitalization)
  Sender: ABBVIE
  Company Number: CN-ABBVIE-6539050

PATIENT
  Age: 63 Year
  Sex: Male
  Weight: 75 kg

DRUGS (5)
  1. VENETOCLAX [Suspect]
     Active Substance: VENETOCLAX
     Indication: Symptomatic treatment
     Dosage: 200 MILLIGRAM
     Route: 048
     Dates: start: 20251024, end: 20251024
  2. VENETOCLAX [Suspect]
     Active Substance: VENETOCLAX
     Indication: Symptomatic treatment
     Dosage: 100 MILLIGRAM
     Route: 048
     Dates: start: 20251023, end: 20251023
  3. VENETOCLAX [Suspect]
     Active Substance: VENETOCLAX
     Indication: Symptomatic treatment
     Dosage: 400 MILLIGRAM
     Route: 048
     Dates: start: 20251025
  4. OMACETAXINE MEPESUCCINATE [Suspect]
     Active Substance: OMACETAXINE MEPESUCCINATE
     Indication: Symptomatic treatment
     Dosage: 2 MILLIGRAM
     Route: 041
     Dates: start: 20251023, end: 20251025
  5. DECITABINE [Suspect]
     Active Substance: DECITABINE
     Indication: Symptomatic treatment
     Dosage: 35 MILLIGRAM
     Route: 041
     Dates: start: 20251023, end: 20251025

REACTIONS (4)
  - Acute kidney injury [Unknown]
  - Hyperkalaemia [Unknown]
  - Myelosuppression [Not Recovered/Not Resolved]
  - Tumour lysis syndrome [Unknown]

NARRATIVE: CASE EVENT DATE: 20251025
